FAERS Safety Report 6865544-1 (Version None)
Quarter: 2010Q3

REPORT INFORMATION
  Report Type: 
  Country: None (occurrence: None)
  Receive Date: 20100721
  Receipt Date: 20080424
  Transmission Date: 20110219
  Serious: No
  Sender: FDA-Public Use
  Company Number: US-PFIZER INC-2008037779

PATIENT
  Sex: Male
  Weight: 79.545 kg

DRUGS (3)
  1. CHANTIX [Suspect]
     Indication: SMOKING CESSATION THERAPY
     Dates: start: 20080327
  2. REYATAZ [Concomitant]
  3. COMBIVIR [Concomitant]

REACTIONS (3)
  - ABNORMAL DREAMS [None]
  - DRUG DOSE OMISSION [None]
  - INSOMNIA [None]
